FAERS Safety Report 8043304-6 (Version None)
Quarter: 2012Q1

REPORT INFORMATION
  Report Type: 
  Country: None (occurrence: None)
  Receive Date: 20120112
  Receipt Date: 20120105
  Transmission Date: 20120608
  Serious: Yes (Death)
  Sender: FDA-Public Use
  Company Number: US-GLAXOSMITHKLINE-A0960234A

PATIENT

DRUGS (3)
  1. PAXIL [Suspect]
     Route: 064
  2. PAROXETINE [Suspect]
     Route: 064
  3. CRYSTAL METH [Suspect]
     Route: 064

REACTIONS (3)
  - HEART DISEASE CONGENITAL [None]
  - FOETAL EXPOSURE DURING PREGNANCY [None]
  - DEATH NEONATAL [None]
